FAERS Safety Report 10779823 (Version 1)
Quarter: 2015Q1

REPORT INFORMATION
  Report Type: Spontaneous
  Country: US (occurrence: None)
  Receive Date: 20150206
  Receipt Date: 20150206
  Transmission Date: 20150721
  Serious: No
  Sender: FDA-Public Use
  Company Number: None

PATIENT
  Age: 50 Year
  Sex: Male

DRUGS (18)
  1. ZESTRIL [Concomitant]
     Active Substance: LISINOPRIL
  2. CALCIUM CITRATE [Concomitant]
     Active Substance: CALCIUM CITRATE
  3. ADEMPAS [Suspect]
     Active Substance: RIOCIGUAT
     Indication: COR PULMONALE CHRONIC
     Route: 048
     Dates: start: 20140402
  4. FISH OIL [Concomitant]
     Active Substance: FISH OIL
  5. ADEMPAS [Suspect]
     Active Substance: RIOCIGUAT
     Indication: HEART DISEASE CONGENITAL
     Route: 048
     Dates: start: 20140402
  6. TRAZODONE [Concomitant]
     Active Substance: TRAZODONE HYDROCHLORIDE
  7. ZOLOFT [Concomitant]
     Active Substance: SERTRALINE HYDROCHLORIDE
  8. LASIX [Concomitant]
     Active Substance: FUROSEMIDE
  9. COENZYME Q10 [Concomitant]
     Active Substance: UBIDECARENONE
  10. VITAMIN D3 [Concomitant]
     Active Substance: CHOLECALCIFEROL
  11. ADEMPAS [Suspect]
     Active Substance: RIOCIGUAT
     Indication: CONNECTIVE TISSUE DISORDER
     Route: 048
     Dates: start: 20140402
  12. ADEMPAS [Suspect]
     Active Substance: RIOCIGUAT
     Indication: PULMONARY ARTERIAL HYPERTENSION
     Route: 048
     Dates: start: 20140402
  13. ADOMPAS [Concomitant]
  14. K-TAB [Concomitant]
     Active Substance: POTASSIUM CHLORIDE
  15. PRILOSEC [Concomitant]
     Active Substance: OMEPRAZOLE MAGNESIUM
  16. VITAMIN C [Concomitant]
     Active Substance: ASCORBIC ACID
  17. VIT B COMPLEX [Concomitant]
  18. MVI [Concomitant]
     Active Substance: VITAMINS

REACTIONS (8)
  - Epigastric discomfort [None]
  - Waist circumference increased [None]
  - Oedema peripheral [None]
  - Abdominal pain upper [None]
  - Fluid retention [None]
  - Weight increased [None]
  - Oxygen consumption decreased [None]
  - Lung disorder [None]

NARRATIVE: CASE EVENT DATE: 20140424
